FAERS Safety Report 25393735 (Version 1)
Quarter: 2025Q2

REPORT INFORMATION
  Report Type: Spontaneous
  Country: US (occurrence: US)
  Receive Date: 20250604
  Receipt Date: 20250604
  Transmission Date: 20250716
  Serious: No
  Sender: Steriscience PTE
  Company Number: US-STERISCIENCE B.V.-2025-ST-000984

PATIENT
  Age: 15 Year
  Sex: Male

DRUGS (5)
  1. SUMATRIPTAN [Suspect]
     Active Substance: SUMATRIPTAN
     Indication: Headache
     Route: 065
  2. MECLIZINE [Suspect]
     Active Substance: MECLIZINE HYDROCHLORIDE
     Indication: Headache
     Route: 065
  3. ZONISAMIDE [Suspect]
     Active Substance: ZONISAMIDE
     Indication: Headache
     Route: 065
  4. TOPIRAMATE [Suspect]
     Active Substance: TOPIRAMATE
     Indication: Headache
     Route: 065
  5. Pfizer-BioNTech mRNA COVID-19 vaccine [Concomitant]
     Indication: COVID-19 immunisation
     Route: 065

REACTIONS (1)
  - Therapy non-responder [Unknown]
